FAERS Safety Report 25451136 (Version 1)
Quarter: 2025Q2

REPORT INFORMATION
  Report Type: Spontaneous
  Country: IN (occurrence: None)
  Receive Date: 20250618
  Receipt Date: 20250618
  Transmission Date: 20250716
  Serious: Yes (Disabling)
  Sender: FDA-CTU
  Company Number: None

PATIENT
  Age: 80 Year
  Sex: Male
  Weight: 95.25 kg

DRUGS (2)
  1. VARITHENA [Suspect]
     Active Substance: POLIDOCANOL
     Indication: Endovenous ablation
     Dates: start: 20250218, end: 20250218
  2. VARITHENA [Suspect]
     Active Substance: POLIDOCANOL
     Indication: Endovenous ablation

REACTIONS (6)
  - Pain in extremity [None]
  - Arthralgia [None]
  - Musculoskeletal pain [None]
  - Limb injury [None]
  - Accident at home [None]
  - Off label use [None]

NARRATIVE: CASE EVENT DATE: 20250325
